FAERS Safety Report 6183888-6 (Version None)
Quarter: 2009Q2

REPORT INFORMATION
  Report Type: 
  Country: None (occurrence: None)
  Receive Date: 20090508
  Receipt Date: 20090504
  Transmission Date: 20091009
  Serious: Yes (Hospitalization)
  Sender: FDA-Public Use
  Company Number: DE-AMGEN-UK344639

PATIENT
  Sex: Female

DRUGS (4)
  1. ARANESP [Suspect]
     Indication: ANAEMIA OF MALIGNANT DISEASE
     Route: 058
     Dates: start: 20060714, end: 20060714
  2. DOCETAXEL [Suspect]
     Route: 042
     Dates: start: 20060713, end: 20060713
  3. DOXORUBICIN HCL [Suspect]
     Route: 042
     Dates: start: 20060713, end: 20060713
  4. CYCLOPHOSPHAMIDE [Suspect]
     Route: 042
     Dates: start: 20060713, end: 20060713

REACTIONS (1)
  - CARDIOVASCULAR DISORDER [None]
